FAERS Safety Report 7640139-0 (Version None)
Quarter: 2011Q3

REPORT INFORMATION
  Report Type: 
  Country: None (occurrence: None)
  Receive Date: 20110728
  Receipt Date: 20110708
  Transmission Date: 20111222
  Serious: No
  Sender: FDA-Public Use
  Company Number: US-BAYER-2011-060504

PATIENT
  Age: 4 Year
  Sex: Female
  Weight: 27 kg

DRUGS (1)
  1. ALEVE (CAPLET) [Suspect]
     Dosage: COUNT SIZE 100S
     Route: 048
     Dates: start: 20110708, end: 20110708

REACTIONS (1)
  - NO ADVERSE EVENT [None]
